FAERS Safety Report 4435322-1 (Version None)
Quarter: 2004Q3

REPORT INFORMATION
  Report Type: 
  Country: None (occurrence: None)
  Receive Date: 20040827
  Receipt Date: 20040827
  Transmission Date: 20050211
  Serious: Yes (Other)
  Sender: FDA-Public Use
  Company Number: None

PATIENT
  Sex: Male
  Weight: 20.1 kg

DRUGS (2)
  1. AUGMENTIN ES-600 [Suspect]
     Indication: OTITIS MEDIA
     Dosage: 3 ML BID ORAL
     Route: 048
     Dates: start: 20040820, end: 20040829
  2. AUGMENTIN ES-600 [Suspect]
     Indication: UPPER RESPIRATORY TRACT INFECTION
     Dosage: 3 ML BID ORAL
     Route: 048
     Dates: start: 20040820, end: 20040829

REACTIONS (1)
  - VOMITING [None]
